FAERS Safety Report 8584013-4 (Version None)
Quarter: 2012Q3

REPORT INFORMATION
  Report Type: 
  Country: None (occurrence: None)
  Receive Date: 20120810
  Receipt Date: 20120726
  Transmission Date: 20120928
  Serious: Yes (Other)
  Sender: FDA-Public Use
  Company Number: US-009507513-1207USA012391

PATIENT

DRUGS (2)
  1. REBETOL [Suspect]
     Route: 048
  2. VICTRELIS [Suspect]
     Route: 048

REACTIONS (1)
  - RASH [None]
